FAERS Safety Report 13161350 (Version 1)
Quarter: 2017Q1

REPORT INFORMATION
  Report Type: Spontaneous
  Country: US (occurrence: US)
  Receive Date: 20170130
  Receipt Date: 20170130
  Transmission Date: 20170428
  Serious: No
  Sender: FDA-Public Use
  Company Number: US-ASTRAZENECA-2017SE07356

PATIENT
  Sex: Male
  Weight: 108.9 kg

DRUGS (9)
  1. LISINOPRIL. [Suspect]
     Active Substance: LISINOPRIL
     Indication: HYPERTENSION
     Route: 048
  2. METFORMIN [Concomitant]
     Active Substance: METFORMIN HYDROCHLORIDE
     Dosage: 1000 MG PO THREE TIMES DAILY, WHICH HE STARTED 3 YEARS AGO
     Route: 048
  3. GLIPIZIDE. [Concomitant]
     Active Substance: GLIPIZIDE
     Route: 048
  4. XYLOPROCT [Concomitant]
     Indication: HAEMORRHOIDS
     Route: 054
  5. METFORMIN [Concomitant]
     Active Substance: METFORMIN HYDROCHLORIDE
     Dosage: METFORMIN XR PO TWICE DAILY
     Route: 048
  6. ATORVASTATIN [Concomitant]
     Active Substance: ATORVASTATIN
     Indication: BLOOD CHOLESTEROL ABNORMAL
     Route: 048
  7. ASPIRIN. [Concomitant]
     Active Substance: ASPIRIN
     Dosage: LOW DOSE
  8. FARXIGA [Suspect]
     Active Substance: DAPAGLIFLOZIN PROPANEDIOL
     Indication: TYPE 2 DIABETES MELLITUS
     Dosage: 10 MG PO DAILY FOR 3 YEARS
     Route: 048
     Dates: start: 201310
  9. GENERAL VITAMIN [Concomitant]
     Dosage: VITAMIN D PO DAILY

REACTIONS (10)
  - Haemorrhoids [Unknown]
  - Feeling abnormal [Unknown]
  - Loss of consciousness [Unknown]
  - Hyperhidrosis [Unknown]
  - Diarrhoea [Unknown]
  - Visual acuity reduced [Unknown]
  - Nausea [Unknown]
  - Blood glucose decreased [Unknown]
  - Weight increased [Unknown]
  - Weight decreased [Recovered/Resolved]
